FAERS Safety Report 5692900-X (Version None)
Quarter: 2008Q2

REPORT INFORMATION
  Report Type: 
  Country: None (occurrence: None)
  Receive Date: 20080327
  Receipt Date: 20080225
  Transmission Date: 20081010
  Serious: Yes (Other)
  Sender: FDA-Public Use
  Company Number: A03200706208

PATIENT
  Age: 30 Year
  Sex: Female
  Weight: 72.1219 kg

DRUGS (2)
  1. AMBIEN CR [Suspect]
     Indication: INSOMNIA
     Dosage: 12.5 MG HS - ORAL
     Route: 048
     Dates: start: 20070504, end: 20070910
  2. TRAMADOL HCL [Concomitant]

REACTIONS (8)
  - AGGRESSION [None]
  - DIZZINESS [None]
  - DRUG INEFFECTIVE [None]
  - FATIGUE [None]
  - HALLUCINATION [None]
  - MALAISE [None]
  - MOOD SWINGS [None]
  - SOMNAMBULISM [None]
